FAERS Safety Report 9781015 (Version 1)
Quarter: 2013Q4

REPORT INFORMATION
  Report Type: Spontaneous
  Country: US (occurrence: None)
  Receive Date: 20131223
  Receipt Date: 20131223
  Transmission Date: 20140711
  Serious: Yes (Life-Threatening, Hospitalization)
  Sender: FDA-Public Use
  Company Number: None

PATIENT
  Age: 61 Year
  Sex: Male
  Weight: 99.79 kg

DRUGS (3)
  1. NIFEDIPINE ER [Suspect]
     Indication: HYPERTENSION
     Dosage: 1 PILL
     Route: 048
     Dates: start: 20131115, end: 20131204
  2. AZITHROMYCIN [Suspect]
  3. CLARITHROMYCIN [Suspect]

REACTIONS (10)
  - Potentiating drug interaction [None]
  - Mycoplasma infection [None]
  - Cardiomyopathy [None]
  - Upper respiratory tract infection [None]
  - Lower respiratory tract infection [None]
  - Treatment failure [None]
  - Pleural effusion [None]
  - Pericardial effusion [None]
  - Pulmonary hypertension [None]
  - Ejection fraction decreased [None]
